FAERS Safety Report 9517855 (Version 3)
Quarter: 2013Q4

REPORT INFORMATION
  Report Type: Spontaneous
  Country: FR (occurrence: FR)
  Receive Date: 20130912
  Receipt Date: 20131008
  Transmission Date: 20140711
  Serious: Yes (Hospitalization)
  Sender: FDA-Public Use
  Company Number: FR-ASTRAZENECA-2013SE67799

PATIENT
  Age: 27465 Day
  Sex: Male
  Weight: 54 kg

DRUGS (9)
  1. INEXIUM [Suspect]
     Route: 048
     Dates: start: 20130729
  2. IMUREL [Suspect]
     Route: 048
     Dates: start: 20130731, end: 20130827
  3. FORADIL [Concomitant]
     Route: 055
  4. AIROMIR [Concomitant]
     Dosage: AS REQUIRED
     Route: 055
  5. CRESTOR [Concomitant]
     Route: 048
  6. QVAR [Concomitant]
     Route: 055
  7. DACRYOSERUM [Concomitant]
     Route: 047
  8. MESTINON [Concomitant]
     Route: 048
  9. CORTANCYL [Concomitant]
     Route: 048

REACTIONS (2)
  - Bone marrow failure [Recovered/Resolved]
  - Pancytopenia [Recovered/Resolved]
